FAERS Safety Report 15514904 (Version 2)
Quarter: 2018Q4

REPORT INFORMATION
  Report Type: Report from Study
  Country: CN (occurrence: CN)
  Receive Date: 20181017
  Receipt Date: 20181025
  Transmission Date: 20190205
  Serious: Yes (Hospitalization)
  Sender: FDA-Public Use
  Company Number: CN-ROCHE-2197463

PATIENT
  Age: 64 Year
  Sex: Female
  Weight: 48 kg

DRUGS (27)
  1. PALONOSETRON. [Concomitant]
     Active Substance: PALONOSETRON HYDROCHLORIDE
     Route: 065
     Dates: start: 20180927, end: 20180927
  2. FUROSEMIDE. [Concomitant]
     Active Substance: FUROSEMIDE
     Indication: POLYURIA
     Route: 065
     Dates: start: 20180906, end: 20180907
  3. PACLITAXEL. [Suspect]
     Active Substance: PACLITAXEL
     Indication: OVARIAN CANCER
     Dosage: DATE OF MOST RECENT DOSE (240 MG) OF PACLITAXEL PRIOR TO AE ONSET: 27/SEP/2018.
     Route: 042
     Dates: start: 20180906
  4. CARBOPLATIN. [Suspect]
     Active Substance: CARBOPLATIN
     Indication: OVARIAN CANCER
     Dosage: AT A DOSE TO ACHIEVE A TARGET AREA UNDER THE CURVE (AUC) OF 6 MILLIGRAMS PER MILLILITER*MINUTE (MG/M
     Route: 042
     Dates: start: 20180906
  5. ADRENALIN HYDROCHLORIDE [Concomitant]
     Route: 065
     Dates: start: 20180905, end: 20180905
  6. LORATADINE. [Concomitant]
     Active Substance: LORATADINE
     Indication: HYPERSENSITIVITY
     Route: 065
     Dates: start: 20180906, end: 20180906
  7. GLUTATHIONE REDUCED [Concomitant]
     Route: 065
     Dates: start: 20180905, end: 20180909
  8. LIDOCAINE HYDROCHLORIDE. [Concomitant]
     Active Substance: LIDOCAINE HYDROCHLORIDE
     Route: 065
     Dates: start: 20180905, end: 20180905
  9. DEXAMETHASONE ACETATE [Concomitant]
     Active Substance: DEXAMETHASONE ACETATE
     Indication: HYPERSENSITIVITY
     Route: 065
     Dates: start: 20180905, end: 20180905
  10. LORATADINE. [Concomitant]
     Active Substance: LORATADINE
     Route: 065
     Dates: start: 20180927, end: 20180927
  11. CIMETIDINE [Concomitant]
     Active Substance: CIMETIDINE
     Route: 065
     Dates: start: 20180927, end: 20180927
  12. FUROSEMIDE. [Concomitant]
     Active Substance: FUROSEMIDE
     Indication: POLYURIA
     Route: 065
     Dates: start: 20180927, end: 20180928
  13. HEPARIN SODIUM. [Concomitant]
     Active Substance: HEPARIN SODIUM
     Route: 065
     Dates: start: 20180905, end: 20180905
  14. PALONOSETRON. [Concomitant]
     Active Substance: PALONOSETRON HYDROCHLORIDE
     Indication: VOMITING
     Route: 065
     Dates: start: 20180906, end: 20180906
  15. SORBITOL. [Concomitant]
     Active Substance: SORBITOL
     Indication: CONSTIPATION
     Route: 065
     Dates: start: 20180928, end: 20180928
  16. SORBITOL. [Concomitant]
     Active Substance: SORBITOL
     Route: 065
     Dates: start: 20180930, end: 20180930
  17. OMEPRAZOLE SODIUM [Concomitant]
     Active Substance: OMEPRAZOLE SODIUM
     Route: 065
     Dates: start: 20180926, end: 20181003
  18. BEVACIZUMAB. [Suspect]
     Active Substance: BEVACIZUMAB
     Indication: OVARIAN CANCER
     Dosage: DOSE AS PER PROTOCOL 15 MG/KG?DATE OF MOST RECENT DOSE OF BEVACIZUMAB PRIOR TO AE ONSET: 27/SEP/2018
     Route: 042
     Dates: start: 20180927
  19. DEXAMETHASONE ACETATE [Concomitant]
     Active Substance: DEXAMETHASONE ACETATE
     Route: 048
     Dates: start: 20180926, end: 20180926
  20. DEXAMETHASONE SODIUM PHOSPHATE. [Concomitant]
     Active Substance: DEXAMETHASONE SODIUM PHOSPHATE
     Route: 065
     Dates: start: 20180906, end: 20180906
  21. DEXAMETHASONE SODIUM PHOSPHATE. [Concomitant]
     Active Substance: DEXAMETHASONE SODIUM PHOSPHATE
     Route: 042
     Dates: start: 20180927, end: 20180927
  22. ATEZOLIZUMAB. [Suspect]
     Active Substance: ATEZOLIZUMAB
     Indication: OVARIAN CANCER
     Dosage: DATE OF MOST RECENT DOSE OF ATEZOLIZUMAB/PLACEBO PRIOR TO AE ONSET 27/SEP/2018.
     Route: 042
     Dates: start: 20180906
  23. OMEPRAZOLE SODIUM [Concomitant]
     Active Substance: OMEPRAZOLE SODIUM
     Route: 065
     Dates: start: 20180905, end: 20180909
  24. MAREN SOFT CAPSULE [Concomitant]
     Route: 065
     Dates: start: 20180930
  25. CIMETIDINE [Concomitant]
     Active Substance: CIMETIDINE
     Route: 065
     Dates: start: 20180906, end: 20180906
  26. GLUTATHIONE REDUCED [Concomitant]
     Route: 065
     Dates: start: 20180926, end: 20181003
  27. HYDROTALCITE [Concomitant]
     Active Substance: HYDROTALCITE
     Route: 065
     Dates: start: 20180929

REACTIONS (1)
  - Neutrophil count decreased [Recovered/Resolved]

NARRATIVE: CASE EVENT DATE: 20181004
